FAERS Safety Report 11871675 (Version 2)
Quarter: 2016Q1

REPORT INFORMATION
  Report Type: Report from Study
  Country: US (occurrence: US)
  Receive Date: 20151228
  Receipt Date: 20160114
  Transmission Date: 20160526
  Serious: Yes (Death, Hospitalization)
  Sender: FDA-Public Use
  Company Number: US-TEVA-621291USA

PATIENT
  Age: 62 Year
  Sex: Male
  Weight: 104 kg

DRUGS (4)
  1. VELCADE [Suspect]
     Active Substance: BORTEZOMIB
     Indication: B-CELL LYMPHOMA
     Route: 065
     Dates: start: 20111212, end: 20120217
  2. TREANDA [Suspect]
     Active Substance: BENDAMUSTINE HYDROCHLORIDE
     Indication: B-CELL LYMPHOMA
     Route: 042
     Dates: start: 20150507, end: 20150508
  3. OFATUMUMAB [Suspect]
     Active Substance: OFATUMUMAB
     Route: 065
  4. RITUXIMAB [Suspect]
     Active Substance: RITUXIMAB
     Indication: B-CELL LYMPHOMA
     Route: 065
     Dates: start: 20111212, end: 20120507

REACTIONS (1)
  - Leukoencephalopathy [Fatal]

NARRATIVE: CASE EVENT DATE: 20151207
